FAERS Safety Report 5703336-7 (Version None)
Quarter: 2008Q2

REPORT INFORMATION
  Report Type: 
  Country: None (occurrence: None)
  Receive Date: 20080411
  Receipt Date: 20080408
  Transmission Date: 20081010
  Serious: Yes (Death, Hospitalization, Other)
  Sender: FDA-Public Use
  Company Number: BR-ABBOTT-08P-020-0446464-00

PATIENT
  Age: 48 Year
  Sex: Male

DRUGS (1)
  1. HUMIRA [Suspect]
     Indication: ANKYLOSING SPONDYLITIS
     Dates: start: 20061201, end: 20080106

REACTIONS (11)
  - ANAEMIA [None]
  - CYTOMEGALOVIRUS ANTIBODY POSITIVE [None]
  - HEPATOMEGALY [None]
  - LYMPHATIC DISORDER [None]
  - MALAISE [None]
  - PAIN [None]
  - PLATELET COUNT DECREASED [None]
  - PYREXIA [None]
  - SPLENOMEGALY [None]
  - URTICARIA [None]
  - VISCERAL LEISHMANIASIS [None]
